FAERS Safety Report 18770215 (Version 1)
Quarter: 2021Q1

REPORT INFORMATION
  Report Type: Spontaneous
  Country: JP (occurrence: JP)
  Receive Date: 20210121
  Receipt Date: 20210121
  Transmission Date: 20210419
  Serious: Yes (Death, Other)
  Sender: FDA-Public Use
  Company Number: JP-BAYER-2021-023559

PATIENT
  Age: 80 Year
  Sex: Male
  Weight: 61.8 kg

DRUGS (8)
  1. BIOFERMIN [BACILLUS SUBTILIS;ENTEROCOCCUS FAECALIS;LACTOBACILLUS A [Concomitant]
  2. LOXOPROFEN [Concomitant]
     Active Substance: LOXOPROFEN
  3. CERNILTON [CERNITIN GBX;CERNITIN T60] [Concomitant]
  4. LANSOPRAZOLE TOWA [Concomitant]
     Active Substance: LANSOPRAZOLE
  5. ADONA (AC?17) [Concomitant]
  6. STIVARGA [Suspect]
     Active Substance: REGORAFENIB
     Dosage: 160 MG, QD
     Route: 048
     Dates: start: 20210108, end: 20210113
  7. REBAMIPIDE OTSUKA [Concomitant]
  8. SILODOSIN OD DSEP [Concomitant]

REACTIONS (11)
  - Cardio-respiratory arrest [None]
  - Infarction [None]
  - Disease progression [None]
  - Diarrhoea [Fatal]
  - Dehydration [Fatal]
  - Dyspnoea exertional [None]
  - Pain [None]
  - Dysstasia [None]
  - Blood creatine phosphokinase increased [None]
  - Fall [None]
  - Malaise [None]

NARRATIVE: CASE EVENT DATE: 202101
